FAERS Safety Report 9174970 (Version 1)
Quarter: 2013Q1

REPORT INFORMATION
  Report Type: Spontaneous
  Country: US (occurrence: US)
  Receive Date: 20130320
  Receipt Date: 20130320
  Transmission Date: 20140127
  Serious: No
  Sender: FDA-Public Use
  Company Number: US-TARO-2013P1001198

PATIENT
  Age: 80 Year
  Sex: Male
  Weight: 90.27 kg

DRUGS (4)
  1. FLUOROURACIL [Suspect]
     Indication: ACTINIC KERATOSIS
     Route: 061
     Dates: start: 20121026, end: 20121026
  2. FLUOROURACIL [Suspect]
     Indication: ACTINIC KERATOSIS
     Route: 061
     Dates: start: 20121027, end: 20121027
  3. FLUOROURACIL [Suspect]
     Indication: ACTINIC KERATOSIS
     Route: 061
     Dates: start: 20121028, end: 20121029
  4. ALLERGY SHOTS [Concomitant]
     Dates: start: 2003

REACTIONS (1)
  - Hypersensitivity [Not Recovered/Not Resolved]
